FAERS Safety Report 25223674 (Version 1)
Quarter: 2025Q2

REPORT INFORMATION
  Report Type: Spontaneous
  Country: US (occurrence: US)
  Receive Date: 20250422
  Receipt Date: 20250422
  Transmission Date: 20250717
  Serious: Yes (Hospitalization, Other)
  Sender: LOREAL
  Company Number: US-LOREAL USA SD, INC.-2025LOR00015

PATIENT
  Sex: Female

DRUGS (1)
  1. LA ROCHE-POSAY EFFACLAR DUO DUAL ACTION ACNE TREATMENT [Suspect]
     Active Substance: BENZOYL PEROXIDE
     Route: 061
     Dates: start: 2023, end: 202408

REACTIONS (5)
  - Acute promyelocytic leukaemia [Not Recovered/Not Resolved]
  - Fatigue [Not Recovered/Not Resolved]
  - Dyspnoea [Not Recovered/Not Resolved]
  - Headache [Not Recovered/Not Resolved]
  - Recalled product administered [Recovered/Resolved]

NARRATIVE: CASE EVENT DATE: 20240101
